FAERS Safety Report 7963147-9 (Version None)
Quarter: 2011Q4

REPORT INFORMATION
  Report Type: 
  Country: None (occurrence: None)
  Receive Date: 20111207
  Receipt Date: 20070427
  Transmission Date: 20120403
  Serious: Yes (Other)
  Sender: FDA-Public Use
  Company Number: PHHY2007AU011391

PATIENT
  Age: 20 Year
  Sex: Male

DRUGS (1)
  1. RITALIN [Suspect]
     Indication: ATTENTION DEFICIT/HYPERACTIVITY DISORDER

REACTIONS (3)
  - PHYSICAL ASSAULT [None]
  - BORDERLINE PERSONALITY DISORDER [None]
  - SEXUAL ABUSE [None]
